FAERS Safety Report 8484507-6 (Version None)
Quarter: 2012Q3

REPORT INFORMATION
  Report Type: 
  Country: None (occurrence: None)
  Receive Date: 20120703
  Receipt Date: 20120627
  Transmission Date: 20120928
  Serious: Yes (Other)
  Sender: FDA-Public Use
  Company Number: PHHY2012FR029518

PATIENT
  Sex: Male
  Weight: 80 kg

DRUGS (8)
  1. BISOPROLOL FUMARATE [Concomitant]
     Indication: HYPERTENSION
  2. KARDEGIC [Concomitant]
  3. TAMSULOSIN HCL [Concomitant]
  4. DIGOXIN [Concomitant]
  5. TASIGNA [Suspect]
     Indication: CHRONIC MYELOID LEUKAEMIA
     Dosage: 600 MG, DAILY
     Route: 048
     Dates: start: 20100105
  6. SIMVASTATIN [Concomitant]
     Indication: DYSLIPIDAEMIA
  7. LYRICA [Concomitant]
  8. PLAVIX [Concomitant]

REACTIONS (3)
  - ISCHAEMIA [None]
  - ARTERIAL THROMBOSIS [None]
  - INTERMITTENT CLAUDICATION [None]
